FAERS Safety Report 9513405 (Version 1)
Quarter: 2013Q3

REPORT INFORMATION
  Report Type: Spontaneous
  Country: FR (occurrence: FR)
  Receive Date: 20130910
  Receipt Date: 20130910
  Transmission Date: 20140515
  Serious: Yes (Hospitalization)
  Sender: FDA-Public Use
  Company Number: FR-ABBOTT-13X-056-1143993-00

PATIENT
  Age: 66 Year
  Sex: Female

DRUGS (7)
  1. DEPAKINE CHRONO [Suspect]
     Indication: PRODUCT USED FOR UNKNOWN INDICATION
     Route: 048
  2. TEGRETOL [Suspect]
     Indication: PRODUCT USED FOR UNKNOWN INDICATION
     Route: 048
  3. KEPPRA [Concomitant]
     Indication: PRODUCT USED FOR UNKNOWN INDICATION
  4. URBANYL [Concomitant]
     Indication: PRODUCT USED FOR UNKNOWN INDICATION
  5. COAPROVEL [Concomitant]
     Indication: PRODUCT USED FOR UNKNOWN INDICATION
  6. ATENOLOL [Concomitant]
     Indication: PRODUCT USED FOR UNKNOWN INDICATION
  7. RILMENIDINE [Concomitant]
     Indication: PRODUCT USED FOR UNKNOWN INDICATION

REACTIONS (5)
  - Electrocardiogram QT prolonged [Recovered/Resolved]
  - Drug level increased [Recovered/Resolved]
  - Confusional state [Recovered/Resolved]
  - Drug administration error [Recovered/Resolved]
  - Ataxia [Recovered/Resolved]
